FAERS Safety Report 20379173 (Version 1)
Quarter: 2022Q1

REPORT INFORMATION
  Report Type: Spontaneous
  Country: US (occurrence: None)
  Receive Date: 20220126
  Receipt Date: 20220126
  Transmission Date: 20220423
  Serious: Yes (Hospitalization)
  Sender: FDA-Public Use
  Company Number: None

PATIENT
  Sex: Female

DRUGS (10)
  1. NUCALA [Suspect]
     Active Substance: MEPOLIZUMAB
     Indication: Asthma
     Dosage: OTHER FREQUENCY : EVERY 28 DAYS;?
     Route: 058
     Dates: start: 20211112
  2. ASPIRIN TAB [Concomitant]
  3. BUDESONIDE SUS [Concomitant]
  4. DILTIAZEM TAB [Concomitant]
  5. DIOVAN [Concomitant]
     Active Substance: VALSARTAN
  6. DULERA AER [Concomitant]
  7. SINGULAIR [Concomitant]
     Active Substance: MONTELUKAST SODIUM
  8. SPIRIVA [Concomitant]
     Active Substance: TIOTROPIUM BROMIDE MONOHYDRATE
  9. VITAMIN D TAB [Concomitant]
  10. NEXIUM 20 MG [Concomitant]

REACTIONS (1)
  - Hospitalisation [None]
